FAERS Safety Report 4995555-2 (Version None)
Quarter: 2006Q2

REPORT INFORMATION
  Report Type: 
  Country: None (occurrence: None)
  Receive Date: 20060504
  Receipt Date: 20060413
  Transmission Date: 20061013
  Serious: Yes (Other)
  Sender: FDA-Public Use
  Company Number: C184

PATIENT
  Age: 50 Year
  Sex: Female
  Weight: 62.5964 kg

DRUGS (6)
  1. PRANACTIN-CITRIC, BULK DRUG COMPONENT GRANULATOR:  MERETEK DIAGNOSTIC, [Suspect]
     Indication: HELICOBACTER INFECTION
     Dosage: ONE POUCH PER TEST
     Dates: start: 20060412
  2. TAGAMET [Concomitant]
  3. ZELNORM [Concomitant]
  4. HRT [Concomitant]
  5. VITAMIN B COMPLEX CAP [Concomitant]
  6. LACTOSE TABLETS [Concomitant]

REACTIONS (3)
  - DYSPEPSIA [None]
  - PHARMACEUTICAL PRODUCT COMPLAINT [None]
  - PROCEDURAL COMPLICATION [None]
